FAERS Safety Report 8646678 (Version 4)
Quarter: 2012Q4

REPORT INFORMATION
  Report Type: 
  Country: US (occurrence: US)
  Receive Date: 20120703
  Receipt Date: 20121116
  Transmission Date: 20130627
  Serious: Yes (Hospitalization)
  Sender: FDA-Public Use
  Company Number: US-BIOGENIDEC-2012BI023210

PATIENT
  Age: 49 Year
  Sex: Female

DRUGS (1)
  1. TYSABRI [Suspect]
     Indication: MULTIPLE SCLEROSIS
     Route: 042
     Dates: start: 20100720, end: 20120702

REACTIONS (4)
  - Bone disorder [Not Recovered/Not Resolved]
  - Paranasal sinus hypersecretion [Unknown]
  - Aphasia [Unknown]
  - Postoperative wound infection [Not Recovered/Not Resolved]
